FAERS Safety Report 8475007-8 (Version None)
Quarter: 2012Q2

REPORT INFORMATION
  Report Type: 
  Country: None (occurrence: None)
  Receive Date: 20120628
  Receipt Date: 20120620
  Transmission Date: 20120825
  Serious: Yes (Hospitalization)
  Sender: FDA-Public Use
  Company Number: US-BAYER-2011-075446

PATIENT
  Age: 20 Year
  Sex: Female
  Weight: 52.154 kg

DRUGS (10)
  1. PROVENTIL [Concomitant]
  2. MULTI-VITAMIN [Concomitant]
     Dosage: UNK UNK, QD
     Route: 048
  3. OTHER ANALGESICS AND ANTIPYRETICS [Concomitant]
     Indication: ABDOMINAL PAIN
  4. YASMIN [Suspect]
     Indication: ACNE
     Dosage: UNK
     Dates: start: 20090801
  5. DROSPIRENONE AND ETHINYL ESTRADIOL [Suspect]
     Indication: ACNE
     Dosage: UNK
     Dates: start: 20090801
  6. AMOXICILLIN [Concomitant]
     Dosage: 500 MG, UNK
     Dates: start: 20101015
  7. HYDROCODONE BITARTRATE AND ACETAMINOPHEN [Concomitant]
     Dosage: UNK
     Route: 048
     Dates: start: 20101014
  8. ACETAMINOPHEN [Concomitant]
     Indication: HEADACHE
  9. HYDROCODONE BITARTRATE AND ACETAMINOPHEN [Concomitant]
     Dosage: UNK
     Route: 048
     Dates: start: 20101015
  10. LOVENOX [Concomitant]
     Dosage: 60 MG, BID
     Dates: start: 20101021

REACTIONS (3)
  - INJURY [None]
  - CEREBROVASCULAR ACCIDENT [None]
  - CEREBRAL THROMBOSIS [None]
